FAERS Safety Report 8607287-X (Version None)
Quarter: 2012Q3

REPORT INFORMATION
  Report Type: 
  Country: None (occurrence: None)
  Receive Date: 20120807
  Receipt Date: 20120724
  Transmission Date: 20120928
  Serious: Yes (Other)
  Sender: FDA-Public Use
  Company Number: DKLU1083561

PATIENT
  Sex: Female

DRUGS (7)
  1. ZONISAMIDE [Concomitant]
  2. TOPIRAMATE [Suspect]
     Indication: INFANTILE SPASMS
  3. CORTICOTROPIN (CORTICOTROPIN) [Concomitant]
  4. ONFI [Suspect]
     Indication: INFANTILE SPASMS
  5. VALPROIC ACID [Suspect]
     Indication: INFANTILE SPASMS
  6. BENZODIAZEPINE DERIVATIVES (BENZODIAZEPINE DERIVATIVES) [Concomitant]
  7. POTASSIUM BROMIDE (POTASSIUM BROMIDE) [Concomitant]

REACTIONS (4)
  - CONVULSION [None]
  - DROP ATTACKS [None]
  - DRUG INEFFECTIVE [None]
  - DEVELOPMENTAL DELAY [None]
